FAERS Safety Report 10782402 (Version 1)
Quarter: 2015Q1

REPORT INFORMATION
  Report Type: Spontaneous
  Country: FR (occurrence: FR)
  Receive Date: 20150210
  Receipt Date: 20150210
  Transmission Date: 20150721
  Serious: Yes (Hospitalization)
  Sender: FDA-Public Use
  Company Number: FR-ASTRAZENECA-2015SE12493

PATIENT
  Age: 29829 Day
  Sex: Female

DRUGS (8)
  1. ALDACTAZINE [Concomitant]
     Active Substance: ALTHIAZIDE\SPIRONOLACTONE
  2. LEVOTHYROX [Concomitant]
     Active Substance: LEVOTHYROXINE
  3. UN-ALPHA [Concomitant]
  4. INEXIUM [Suspect]
     Active Substance: ESOMEPRAZOLE
     Route: 048
     Dates: start: 20150106, end: 20150110
  5. PREVISCAN [Concomitant]
     Active Substance: FLUINDIONE
     Dates: end: 2015
  6. SEROPRAM [Concomitant]
     Active Substance: CITALOPRAM HYDROBROMIDE
     Dates: start: 201501, end: 201501
  7. HEMIGOXINE [Interacting]
     Active Substance: DIGOXIN
     Route: 048
     Dates: end: 20150108
  8. PERINDOPRIL [Concomitant]
     Active Substance: PERINDOPRIL
     Dates: start: 2015

REACTIONS (5)
  - Drug interaction [Unknown]
  - Bradycardia [Recovering/Resolving]
  - Ventricular extrasystoles [Unknown]
  - Atrioventricular block complete [Recovered/Resolved]
  - Hypomagnesaemia [Unknown]

NARRATIVE: CASE EVENT DATE: 20150111
